FAERS Safety Report 10254731 (Version 1)
Quarter: 2014Q2

REPORT INFORMATION
  Report Type: Spontaneous
  Country: US (occurrence: None)
  Receive Date: 20140620
  Receipt Date: 20140620
  Transmission Date: 20141212
  Serious: Yes (Disabling)
  Sender: FDA-Public Use
  Company Number: None

PATIENT
  Age: 50 Year
  Sex: Female
  Weight: 83.92 kg

DRUGS (1)
  1. CYMBALTA [Suspect]
     Indication: FIBROMYALGIA
     Route: 048
     Dates: start: 20131112, end: 20140418

REACTIONS (12)
  - Quality of life decreased [None]
  - Insomnia [None]
  - Dry mouth [None]
  - Dry eye [None]
  - Constipation [None]
  - Drug ineffective [None]
  - Paraesthesia [None]
  - Fatigue [None]
  - Abdominal discomfort [None]
  - Diarrhoea [None]
  - Discomfort [None]
  - Depression [None]
